FAERS Safety Report 6843075-2 (Version None)
Quarter: 2010Q3

REPORT INFORMATION
  Report Type: 
  Country: None (occurrence: None)
  Receive Date: 20100715
  Receipt Date: 20100706
  Transmission Date: 20110219
  Serious: Yes (Hospitalization)
  Sender: FDA-Public Use
  Company Number: US-BIOGENIDEC-2009BI020335

PATIENT
  Age: 55 Year
  Sex: Female
  Weight: 64 kg

DRUGS (5)
  1. TYSABRI [Suspect]
     Indication: MULTIPLE SCLEROSIS
     Route: 042
     Dates: start: 20071127, end: 20090601
  2. TYSABRI [Suspect]
     Route: 042
     Dates: start: 20090901
  3. VICODIN [Concomitant]
     Indication: PAIN
  4. PHENERGAN [Concomitant]
     Indication: NAUSEA
  5. PERCOCET [Concomitant]
     Indication: FIBROMYALGIA
     Dates: start: 20060101

REACTIONS (19)
  - ABASIA [None]
  - ABDOMINAL HERNIA OBSTRUCTIVE [None]
  - ACTIVITIES OF DAILY LIVING IMPAIRED [None]
  - ACUTE RESPIRATORY DISTRESS SYNDROME [None]
  - CANDIDIASIS [None]
  - HAEMORRHAGIC ANAEMIA [None]
  - HAEMORRHOIDS [None]
  - INTESTINAL PERFORATION [None]
  - LOWER GASTROINTESTINAL HAEMORRHAGE [None]
  - LUNG INFECTION PSEUDOMONAL [None]
  - PAIN [None]
  - RECTAL FISSURE [None]
  - RESPIRATORY FAILURE [None]
  - ROTATOR CUFF SYNDROME [None]
  - SYSTEMIC INFLAMMATORY RESPONSE SYNDROME [None]
  - TRACHEAL DISORDER [None]
  - URINARY TRACT INFECTION ENTEROCOCCAL [None]
  - URINE OUTPUT DECREASED [None]
  - VOMITING [None]
